FAERS Safety Report 7476486-5 (Version None)
Quarter: 2011Q2

REPORT INFORMATION
  Report Type: 
  Country: None (occurrence: None)
  Receive Date: 20110512
  Receipt Date: 20110504
  Transmission Date: 20111010
  Serious: Yes (Other)
  Sender: FDA-Public Use
  Company Number: A0923202A

PATIENT
  Age: 69 Year
  Sex: Female
  Weight: 61.8 kg

DRUGS (10)
  1. BENADRYL [Concomitant]
  2. SYNTHROID [Concomitant]
  3. FISH OIL [Concomitant]
  4. SUPPLEMENT [Concomitant]
  5. SOLU-MEDROL [Concomitant]
  6. DEMEROL [Concomitant]
  7. ALOXYN [Concomitant]
  8. UNSPECIFIED MEDICATION [Concomitant]
  9. ACETAMINOPHEN [Concomitant]
  10. ARZERRA [Suspect]
     Dosage: 2000MG UNKNOWN
     Route: 042
     Dates: start: 20110329, end: 20110418

REACTIONS (10)
  - ASTHENIA [None]
  - PARAESTHESIA [None]
  - GAIT DISTURBANCE [None]
  - BURNING SENSATION [None]
  - HYPOAESTHESIA [None]
  - BALANCE DISORDER [None]
  - POSITIVE ROMBERGISM [None]
  - FALL [None]
  - SENSORY LOSS [None]
  - FEELING COLD [None]
